APPROVED DRUG PRODUCT: ENOXAPARIN SODIUM (PRESERVATIVE FREE)
Active Ingredient: ENOXAPARIN SODIUM
Strength: 30MG/0.3ML (100MG/ML)
Dosage Form/Route: INJECTABLE;SUBCUTANEOUS
Application: A206834 | Product #001 | TE Code: AP
Applicant: EMERGE BIOSCIENCE PTE LTD
Approved: Nov 29, 2019 | RLD: No | RS: No | Type: RX